FAERS Safety Report 13609756 (Version 1)
Quarter: 2017Q2

REPORT INFORMATION
  Report Type: Report from Study
  Country: US (occurrence: US)
  Receive Date: 20170602
  Receipt Date: 20170602
  Transmission Date: 20170830
  Serious: Yes (Hospitalization)
  Sender: FDA-Public Use
  Company Number: US-BAXALTA-2017BLT005143

PATIENT
  Age: 14 Year
  Sex: Male
  Weight: 78.5 kg

DRUGS (5)
  1. ONCASPAR [Suspect]
     Active Substance: PEGASPARGASE
     Indication: CHEMOTHERAPY
     Dosage: 4725, UNK, ONCE
     Route: 042
     Dates: start: 20161021
  2. RUXOLITINIB [Suspect]
     Active Substance: RUXOLITINIB
     Indication: ACUTE LYMPHOCYTIC LEUKAEMIA
     Dosage: 55 MG, 2X A DAY
     Route: 048
     Dates: start: 20161007, end: 20170424
  3. VINCRISTINE [Suspect]
     Active Substance: VINCRISTINE
     Indication: CHEMOTHERAPY
     Dosage: 2 MG, ONCE
     Route: 042
     Dates: start: 20161118, end: 20170425
  4. THIOGUANINE [Suspect]
     Active Substance: THIOGUANINE
     Indication: CHEMOTHERAPY
     Dosage: 111.4 MG, 1X A DAY
     Route: 048
     Dates: start: 20170411, end: 20170424
  5. ONCASPAR [Suspect]
     Active Substance: PEGASPARGASE
     Dosage: UNK
     Route: 065
     Dates: start: 20170425

REACTIONS (1)
  - Febrile neutropenia [Not Recovered/Not Resolved]

NARRATIVE: CASE EVENT DATE: 20170430
